FAERS Safety Report 8533683-5 (Version None)
Quarter: 2012Q3

REPORT INFORMATION
  Report Type: 
  Country: None (occurrence: None)
  Receive Date: 20120724
  Receipt Date: 20120719
  Transmission Date: 20120928
  Serious: No
  Sender: FDA-Public Use
  Company Number: US-PFIZER INC-2012175990

PATIENT
  Sex: Female
  Weight: 77 kg

DRUGS (8)
  1. LIPITOR [Suspect]
     Indication: BLOOD CHOLESTEROL INCREASED
     Dosage: 10 MG, DAILY
  2. LIPITOR [Suspect]
     Dosage: 80 MG, DAILY
  3. LOSARTAN POTASSIUM [Concomitant]
     Indication: HYPERTENSION
     Dosage: 25 MG, DAILY
  4. UBIQUINON [Concomitant]
     Dosage: UNK
  5. KLOR-CON [Concomitant]
     Dosage: UNK
  6. CHLORTHALIDONE [Concomitant]
     Indication: DIURETIC THERAPY
     Dosage: 50 MG, DAILY
  7. POTASSIUM CITRATE [Concomitant]
     Dosage: 10 MEQ, 6X/DAY
  8. CO-Q-10 [Concomitant]
     Dosage: UNK

REACTIONS (2)
  - DRUG INEFFECTIVE [None]
  - TRIGGER FINGER [None]
